FAERS Safety Report 5219287-0 (Version None)
Quarter: 2007Q1

REPORT INFORMATION
  Report Type: 
  Country: None (occurrence: None)
  Receive Date: 20070125
  Receipt Date: 20070116
  Transmission Date: 20070707
  Serious: Yes (Other)
  Sender: FDA-Public Use
  Company Number: US-JNJFOC-20070105074

PATIENT
  Sex: Male
  Weight: 81.65 kg

DRUGS (2)
  1. FENTANYL TRANSDERMAL SYSTEM [Suspect]
     Indication: BACK PAIN
     Route: 062
  2. DURAGESIC-100 [Suspect]
     Indication: BACK PAIN
     Route: 062

REACTIONS (8)
  - ANXIETY [None]
  - APPLICATION SITE PRURITUS [None]
  - CONFUSIONAL STATE [None]
  - DYSPNOEA [None]
  - IMMOBILE [None]
  - INADEQUATE ANALGESIA [None]
  - MEMORY IMPAIRMENT [None]
  - PRURITUS [None]
